FAERS Safety Report 5493163-0 (Version None)
Quarter: 2007Q4

REPORT INFORMATION
  Report Type: 
  Country: None (occurrence: None)
  Receive Date: 20071019
  Receipt Date: 20071003
  Transmission Date: 20080405
  Serious: Yes (Hospitalization, Congenital Anomaly)
  Sender: FDA-Public Use
  Company Number: 2007EU002204

PATIENT
  Age: 1 Day

DRUGS (5)
  1. FK506      (TACROLIMUS) [Suspect]
     Dosage: TRANSPLACENTAL
     Route: 064
     Dates: start: 20040331
  2. MYCOPHENOLATE MOFETIL [Suspect]
     Dosage: 250 MG, BID, TRANSPLACENTAL
     Route: 064
     Dates: start: 20040331, end: 20061003
  3. DACLIZUMAB                              (DACLIZUMAB) [Suspect]
     Dosage: 2 MG/KG, UID/QD, TRANSPLACENTAL
     Route: 064
  4. PREDNISONE                                   (PREDNISONE) [Suspect]
     Dosage: UID/QD, TRANSPLACENTAL
     Route: 064
     Dates: start: 20040404
  5. AZATHIOPRINE [Concomitant]

REACTIONS (8)
  - CAESAREAN SECTION [None]
  - DRUG EXPOSURE DURING PREGNANCY [None]
  - FOETAL DISORDER [None]
  - PREGNANCY [None]
  - RENAL CYST [None]
  - ULTRASOUND ANTENATAL SCREEN ABNORMAL [None]
  - ULTRASOUND KIDNEY ABNORMAL [None]
  - ULTRASOUND PELVIS ABNORMAL [None]
